FAERS Safety Report 22105681 (Version 1)
Quarter: 2023Q1

REPORT INFORMATION
  Report Type: Spontaneous
  Country: AT (occurrence: AT)
  Receive Date: 20230317
  Receipt Date: 20230317
  Transmission Date: 20230418
  Serious: Yes (Other)
  Sender: FDA-Public Use
  Company Number: AT-002147023-NVSC2023AT059625

PATIENT
  Age: 5 Year
  Sex: Male

DRUGS (2)
  1. CARBOPLATIN [Suspect]
     Active Substance: CARBOPLATIN
     Indication: Glioma
     Dosage: UNK
     Route: 065
     Dates: start: 20211208, end: 20220523
  2. CARBOPLATIN [Suspect]
     Active Substance: CARBOPLATIN
     Dosage: UNK
     Route: 065
     Dates: start: 20220601, end: 20221229

REACTIONS (4)
  - Malignant neoplasm progression [Unknown]
  - Glioma [Unknown]
  - Hypersensitivity [Unknown]
  - Therapy non-responder [Unknown]
